FAERS Safety Report 8975933 (Version 1)
Quarter: 2012Q4

REPORT INFORMATION
  Report Type: 
  Country: US (occurrence: US)
  Receive Date: 20121219
  Receipt Date: 20121219
  Transmission Date: 20130627
  Serious: Yes (Other)
  Sender: FDA-Public Use
  Company Number: CHPA2012US025028

PATIENT
  Age: 75 Year
  Sex: Male

DRUGS (3)
  1. MYOFLEX ANALGESIC CREME [Suspect]
     Indication: THERMAL BURN
     Dosage: ABOUT 1 INCH PER APPLICATION, AT LEAST ONCE A WEEK
     Route: 061
     Dates: start: 1997
  2. HYDROCODONE [Suspect]
     Indication: SURGERY
     Dosage: Unk, Unk
     Route: 048
     Dates: start: 201110
  3. ALEVE [Concomitant]
     Indication: PAIN
     Dosage: Unk, Unk
     Route: 048

REACTIONS (16)
  - Diabetes mellitus [Not Recovered/Not Resolved]
  - Cataract [Recovered/Resolved]
  - Musculoskeletal pain [Recovered/Resolved]
  - Amnesia [Not Recovered/Not Resolved]
  - Intervertebral disc protrusion [Recovered/Resolved]
  - Musculoskeletal disorder [Recovered/Resolved]
  - Pollakiuria [Not Recovered/Not Resolved]
  - Back pain [Recovered/Resolved]
  - Skin exfoliation [Not Recovered/Not Resolved]
  - Fall [Recovered/Resolved]
  - Dry eye [Not Recovered/Not Resolved]
  - Skin discolouration [Not Recovered/Not Resolved]
  - Aggression [Unknown]
  - Therapeutic response unexpected [Unknown]
  - Drug ineffective for unapproved indication [Unknown]
  - Off label use [Unknown]
